FAERS Safety Report 19885688 (Version 4)
Quarter: 2021Q4

REPORT INFORMATION
  Report Type: Report from Study
  Country: US (occurrence: None)
  Receive Date: 20210927
  Receipt Date: 20211106
  Transmission Date: 20220303
  Serious: Yes (Life-Threatening, Hospitalization)
  Sender: FDA-Public Use
  Company Number: US-ROCHE-2919271

PATIENT
  Age: 61 Year
  Sex: Male
  Weight: 84.4 kg

DRUGS (2)
  1. TIRAGOLUMAB [Suspect]
     Active Substance: TIRAGOLUMAB
     Indication: Metastatic neoplasm
     Dosage: DATE OF MOST RECENT DOSE OF TIRAGOLUMAB  PRIOR TO ONSET OF SAE: 02/AUG/2021 (840 MG) 12.45 PM ENDED
     Route: 042
     Dates: start: 20210802
  2. ATEZOLIZUMAB [Suspect]
     Active Substance: ATEZOLIZUMAB
     Indication: Metastatic neoplasm
     Dosage: ON 02/08/2021,AT 12:45 P.M., HE STARTED MOST RECENT DOSE OF ATEZOLIZUMAB OF 1680 MG PRIOR TO AE AND
     Route: 042
     Dates: start: 20210802

REACTIONS (1)
  - Obstruction gastric [Not Recovered/Not Resolved]

NARRATIVE: CASE EVENT DATE: 20210913
